FAERS Safety Report 25067325 (Version 4)
Quarter: 2025Q2

REPORT INFORMATION
  Report Type: Spontaneous
  Country: US (occurrence: None)
  Receive Date: 20250312
  Receipt Date: 20250514
  Transmission Date: 20250717
  Serious: Yes (Other)
  Sender: ENCUBE ETHICALS
  Company Number: US-Encube-001680

PATIENT
  Age: 66 Year
  Sex: Female

DRUGS (2)
  1. MESALAMINE [Suspect]
     Active Substance: MESALAMINE
     Indication: Colitis
     Route: 054
     Dates: start: 20250201, end: 20250228
  2. AZULFIDINE [Concomitant]
     Active Substance: SULFASALAZINE
     Indication: Colitis
     Dosage: USED ENTERIC COATED FOR ABOUT 15 YEARS
     Route: 048

REACTIONS (5)
  - Product colour issue [Unknown]
  - Product closure issue [Unknown]
  - Diarrhoea [Recovering/Resolving]
  - Pain [Recovering/Resolving]
  - Colitis [Recovering/Resolving]

NARRATIVE: CASE EVENT DATE: 20250101
